FAERS Safety Report 8791452 (Version 1)
Quarter: 2012Q4

REPORT INFORMATION
  Report Type: Spontaneous
  Country: FR (occurrence: None)
  Receive Date: 20120912
  Receipt Date: 20120912
  Transmission Date: 20130627
  Serious: Yes (Hospitalization, Other)
  Sender: FDA-Public Use
  Company Number: 2012MA010703

PATIENT
  Age: 69 Year

DRUGS (1)
  1. TRIAMCINOLONE ACETONIDE [Suspect]
     Indication: MACULAR EDEMA
     Route: 031
     Dates: start: 200601

REACTIONS (2)
  - Cytomegalovirus chorioretinitis [None]
  - Periphlebitis [None]
